FAERS Safety Report 15724989 (Version 1)
Quarter: 2018Q4

REPORT INFORMATION
  Report Type: Spontaneous
  Country: US (occurrence: US)
  Receive Date: 20181214
  Receipt Date: 20181214
  Transmission Date: 20190205
  Serious: Yes (Hospitalization)
  Sender: FDA-Public Use
  Company Number: US-TEVA-2018-US-985714

PATIENT
  Sex: Male
  Weight: 70.8 kg

DRUGS (10)
  1. TERAZOSIN [Concomitant]
     Active Substance: TERAZOSIN\TERAZOSIN HYDROCHLORIDE
  2. AZILECT [Suspect]
     Active Substance: RASAGILINE MESYLATE
     Route: 065
  3. HCTZ [Concomitant]
     Active Substance: HYDROCHLOROTHIAZIDE
  4. VITAMIN D [Concomitant]
     Active Substance: CHOLECALCIFEROL
  5. MIRABEGRON [Concomitant]
     Active Substance: MIRABEGRON
  6. WARFARIN [Concomitant]
     Active Substance: WARFARIN
  7. PIMAVANSERIN [Concomitant]
     Active Substance: PIMAVANSERIN
  8. LISINOPRIL. [Concomitant]
     Active Substance: LISINOPRIL
  9. FINASTERIDE. [Concomitant]
     Active Substance: FINASTERIDE
  10. SINEMET [Concomitant]
     Active Substance: CARBIDOPA\LEVODOPA

REACTIONS (3)
  - Pyrexia [Unknown]
  - Treatment noncompliance [Unknown]
  - Dehydration [Unknown]
